FAERS Safety Report 13477056 (Version 1)
Quarter: 2017Q2

REPORT INFORMATION
  Report Type: Spontaneous
  Country: GR (occurrence: GR)
  Receive Date: 20170425
  Receipt Date: 20170425
  Transmission Date: 20170830
  Serious: Yes (Other)
  Sender: FDA-Public Use
  Company Number: GR-SA-2017SA072990

PATIENT
  Age: 32 Year
  Sex: Male

DRUGS (2)
  1. RIFAMPICIN [Suspect]
     Active Substance: RIFAMPIN
     Indication: PULMONARY TUBERCULOSIS
     Route: 065
  2. ISONIAZID. [Concomitant]
     Active Substance: ISONIAZID
     Indication: PULMONARY TUBERCULOSIS

REACTIONS (17)
  - Generalised oedema [Recovering/Resolving]
  - Bradycardia [Recovering/Resolving]
  - Electrocardiogram abnormal [Recovering/Resolving]
  - Inflammatory marker increased [Recovering/Resolving]
  - Thyroxine free decreased [Recovering/Resolving]
  - Hypercholesterolaemia [Recovering/Resolving]
  - Tri-iodothyronine free decreased [Recovering/Resolving]
  - Blood thyroid stimulating hormone increased [Recovering/Resolving]
  - Autoimmune thyroiditis [Recovering/Resolving]
  - Dry skin [Recovering/Resolving]
  - Anti-thyroid antibody positive [Recovering/Resolving]
  - Ultrasound thyroid abnormal [Recovering/Resolving]
  - Fatigue [Recovering/Resolving]
  - Dysphonia [Recovering/Resolving]
  - Thyroxine decreased [Recovering/Resolving]
  - Tri-iodothyronine decreased [Recovering/Resolving]
  - Blood creatine phosphokinase increased [Recovering/Resolving]
